FAERS Safety Report 5911795-X (Version None)
Quarter: 2008Q4

REPORT INFORMATION
  Report Type: 
  Country: None (occurrence: None)
  Receive Date: 20081003
  Receipt Date: 20080929
  Transmission Date: 20090506
  Serious: Yes (Hospitalization)
  Sender: FDA-Public Use
  Company Number: WAES 0809DEU00131

PATIENT
  Age: 37 Year
  Sex: Male

DRUGS (5)
  1. SINGULAIR [Suspect]
     Indication: ASTHMA
     Dosage: 10 MG/DAILY
     Route: 048
     Dates: start: 20070928
  2. ALBUTEROL [Concomitant]
  3. BUDESONIDE (+) FORMOTEROL FUMARATE [Concomitant]
  4. PREDNISOLONE [Concomitant]
  5. RAMIPRIL [Concomitant]

REACTIONS (1)
  - ALLERGIC GRANULOMATOUS ANGIITIS [None]
